FAERS Safety Report 18658288 (Version 3)
Quarter: 2025Q4

REPORT INFORMATION
  Report Type: Spontaneous
  Country: US (occurrence: US)
  Receive Date: 20201223
  Receipt Date: 20251126
  Transmission Date: 20260118
  Serious: Yes (Other)
  Sender: COOPERSURGICAL
  Company Number: US-COOPERSURGICAL, INC.-US-2020CPS001333

PATIENT
  Age: 34 Year
  Sex: Female
  Weight: 56.689 kg

DRUGS (2)
  1. PARAGARD T 380A [Suspect]
     Active Substance: COPPER
     Indication: Contraception
     Dosage: UNK
     Route: 015
     Dates: start: 20140911, end: 20200622
  2. IBUPROFEN [Concomitant]
     Active Substance: IBUPROFEN
     Indication: Product used for unknown indication
     Dosage: UNK
     Route: 065

REACTIONS (24)
  - Salpingectomy [Recovered/Resolved]
  - Hysterectomy [Recovered/Resolved]
  - Reproductive complication associated with device [Not Recovered/Not Resolved]
  - Device breakage [Recovered/Resolved]
  - Foreign body in reproductive tract [Recovered/Resolved]
  - Complication of device removal [Recovered/Resolved]
  - Embedded device [Recovered/Resolved]
  - Uterine perforation [Recovered/Resolved]
  - Uterine tenderness [Recovered/Resolved]
  - Procedural pain [Recovered/Resolved]
  - Uterine inflammation [Recovered/Resolved]
  - Cervix inflammation [Recovered/Resolved]
  - Device material issue [Recovered/Resolved]
  - Anxiety [Recovered/Resolved]
  - Depression [Unknown]
  - Emotional distress [Not Recovered/Not Resolved]
  - Discomfort [Unknown]
  - Device expulsion [Recovered/Resolved]
  - Pain [Recovered/Resolved]
  - Pelvic pain [Unknown]
  - Abnormal uterine bleeding [Recovered/Resolved]
  - Dyspareunia [Unknown]
  - Intermenstrual bleeding [Recovered/Resolved]
  - Muscle spasms [Recovered/Resolved]

NARRATIVE: CASE EVENT DATE: 20200519
